FAERS Safety Report 19655692 (Version 1)
Quarter: 2021Q3

REPORT INFORMATION
  Report Type: Spontaneous
  Country: CN (occurrence: CN)
  Receive Date: 20210804
  Receipt Date: 20210804
  Transmission Date: 20211014
  Serious: Yes (Other)
  Sender: FDA-Public Use
  Company Number: CN-PFIZER INC-202100944094

PATIENT
  Age: 67 Year
  Sex: Male

DRUGS (2)
  1. TAZOCIN [Suspect]
     Active Substance: PIPERACILLIN SODIUM\TAZOBACTAM SODIUM
     Indication: ANTI-INFECTIVE THERAPY
     Dosage: 4.5 G, 2X/DAY
     Route: 041
     Dates: start: 20210709, end: 20210709
  2. SODIUM CHLORIDE. [Concomitant]
     Active Substance: SODIUM CHLORIDE
     Indication: VEHICLE SOLUTION USE
     Dosage: 250 ML, 2X/DAY
     Route: 041
     Dates: start: 20210709, end: 20210709

REACTIONS (7)
  - Temperature intolerance [Recovering/Resolving]
  - Blood pressure diastolic increased [Recovered/Resolved]
  - Pyrexia [Unknown]
  - Anaphylactic shock [Recovering/Resolving]
  - Convulsions local [Unknown]
  - Heart rate increased [Recovered/Resolved]
  - Chills [Recovering/Resolving]

NARRATIVE: CASE EVENT DATE: 20210709
